FAERS Safety Report 17926096 (Version 7)
Quarter: 2021Q1

REPORT INFORMATION
  Report Type: Spontaneous
  Country: US (occurrence: US)
  Receive Date: 20200622
  Receipt Date: 20210112
  Transmission Date: 20210419
  Serious: Yes (Other)
  Sender: FDA-Public Use
  Company Number: US-PFIZER INC-2020238594

PATIENT
  Age: 55 Year
  Sex: Female

DRUGS (1)
  1. LYRICA [Suspect]
     Active Substance: PREGABALIN
     Dosage: 100 MG, 2X/DAY
     Route: 048

REACTIONS (7)
  - Visual impairment [Unknown]
  - Rash [Unknown]
  - Walking aid user [Unknown]
  - Back pain [Unknown]
  - Pain in extremity [Unknown]
  - Impaired work ability [Unknown]
  - Loss of employment [Unknown]
